FAERS Safety Report 6579431-X (Version None)
Quarter: 2010Q1

REPORT INFORMATION
  Report Type: 
  Country: None (occurrence: None)
  Receive Date: 20100212
  Receipt Date: 20100202
  Transmission Date: 20100710
  Serious: Yes (Other)
  Sender: FDA-Public Use
  Company Number: ES-JNJFOC-20100201667

PATIENT
  Sex: Female

DRUGS (8)
  1. ABCIXIMAB [Suspect]
     Indication: DRUG EXPOSURE DURING PREGNANCY
  2. ASPIRIN [Suspect]
     Indication: DRUG EXPOSURE DURING PREGNANCY
  3. ASPIRIN [Suspect]
  4. ASPIRIN [Suspect]
  5. CLOPIDOGREL [Suspect]
     Indication: DRUG EXPOSURE DURING PREGNANCY
  6. CLOPIDOGREL [Suspect]
  7. CLOPIDOGREL [Suspect]
  8. HEPARIN [Suspect]
     Indication: DRUG EXPOSURE DURING PREGNANCY

REACTIONS (3)
  - ATRIAL SEPTAL DEFECT [None]
  - MITRAL VALVE INCOMPETENCE [None]
  - VENTRICULAR SEPTAL DEFECT [None]
